FAERS Safety Report 8416035-8 (Version None)
Quarter: 2012Q2

REPORT INFORMATION
  Report Type: 
  Country: None (occurrence: None)
  Receive Date: 20120606
  Receipt Date: 20111108
  Transmission Date: 20120825
  Serious: Yes (Other)
  Sender: FDA-Public Use
  Company Number: US-ROCHE-1004012

PATIENT
  Sex: Female

DRUGS (1)
  1. LUCENTIS [Suspect]
     Indication: AGE-RELATED MACULAR DEGENERATION
     Dosage: AS REQUIRED
     Route: 050
     Dates: start: 20111007, end: 20111008

REACTIONS (4)
  - VISUAL ACUITY REDUCED [None]
  - VISION BLURRED [None]
  - VITRITIS [None]
  - VITREOUS FLOATERS [None]
